FAERS Safety Report 10549278 (Version 1)
Quarter: 2014Q4

REPORT INFORMATION
  Report Type: Spontaneous
  Country: US (occurrence: None)
  Receive Date: 20141016
  Receipt Date: 20141016
  Transmission Date: 20150529
  Serious: Yes (Death)
  Sender: FDA-Public Use
  Company Number: CABO-14004466

PATIENT
  Age: 60 Year
  Sex: Male

DRUGS (2)
  1. COMETRIQ [Suspect]
     Active Substance: CABOZANTINIB S-MALATE
     Indication: LUNG NEOPLASM MALIGNANT
     Route: 048
     Dates: start: 20140527, end: 201407
  2. AMOXICILLIN (AMOXICILLIN) [Concomitant]
     Active Substance: AMOXICILLIN

REACTIONS (7)
  - Regurgitation [None]
  - Productive cough [None]
  - Dysphonia [None]
  - Decreased appetite [None]
  - Fatigue [None]
  - Off label use [None]
  - Malignant neoplasm progression [None]

NARRATIVE: CASE EVENT DATE: 2014
